FAERS Safety Report 15666579 (Version 1)
Quarter: 2018Q4

REPORT INFORMATION
  Report Type: Spontaneous
  Country: US (occurrence: US)
  Receive Date: 20181128
  Receipt Date: 20181128
  Transmission Date: 20190205
  Serious: No
  Sender: FDA-Public Use
  Company Number: US-ROCHE-2097987

PATIENT
  Age: 45 Year
  Sex: Male
  Weight: 90.8 kg

DRUGS (3)
  1. OCREVUS [Suspect]
     Active Substance: OCRELIZUMAB
     Indication: MULTIPLE SCLEROSIS
     Dosage: ONGOING:YES
     Route: 065
     Dates: start: 2017
  2. XANAX [Concomitant]
     Active Substance: ALPRAZOLAM
     Dosage: ONGOING:UNKNOWN
     Route: 065
  3. ADDERALL [Concomitant]
     Active Substance: AMPHETAMINE ASPARTATE\AMPHETAMINE SULFATE\DEXTROAMPHETAMINE SACCHARATE\DEXTROAMPHETAMINE SULFATE
     Dosage: ONGOING:UNKNOWN
     Route: 065

REACTIONS (4)
  - Uhthoff^s phenomenon [Unknown]
  - Hypoaesthesia [Unknown]
  - Fatigue [Not Recovered/Not Resolved]
  - Balance disorder [Not Recovered/Not Resolved]

NARRATIVE: CASE EVENT DATE: 201802
